FAERS Safety Report 24273888 (Version 1)
Quarter: 2024Q3

REPORT INFORMATION
  Report Type: Spontaneous
  Country: US (occurrence: US)
  Receive Date: 20240902
  Receipt Date: 20240902
  Transmission Date: 20241016
  Serious: No
  Sender: ASTELLAS
  Company Number: US-ASTELLAS-2024US010750

PATIENT
  Sex: Male

DRUGS (1)
  1. XTANDI [Suspect]
     Active Substance: ENZALUTAMIDE
     Indication: Product used for unknown indication
     Dosage: 160 MG, ONCE DAILY (40 MG X 4 TABLETS ALL AT ONCE)
     Route: 065
     Dates: start: 20240402

REACTIONS (2)
  - Sneezing [Unknown]
  - Hot flush [Unknown]

NARRATIVE: CASE EVENT DATE: 20240401
